FAERS Safety Report 9613393 (Version 2)
Quarter: 2013Q4

REPORT INFORMATION
  Report Type: Spontaneous
  Country: US (occurrence: US)
  Receive Date: 20131010
  Receipt Date: 20131126
  Transmission Date: 20140711
  Serious: Yes (Hospitalization)
  Sender: FDA-Public Use
  Company Number: US-B.I. PHARMACEUTICALS,INC./RIDGEFIELD-2013-BI-31563BP

PATIENT
  Sex: Male
  Weight: 70.3 kg

DRUGS (6)
  1. PRADAXA [Suspect]
     Indication: ATRIAL FIBRILLATION
     Dosage: 150 MG
     Dates: start: 20120221, end: 20130118
  2. POTASSIUM GLUCONATE [Concomitant]
  3. CENTRUM SILVER [Concomitant]
     Route: 048
  4. VITAMIN D [Concomitant]
     Dosage: 1000 U
     Route: 048
  5. METOPROLOL TARTRATE [Concomitant]
     Dosage: 50 U
     Route: 048
  6. CALCIUM [Concomitant]
     Dosage: 1200 U
     Route: 048

REACTIONS (3)
  - Gastrointestinal haemorrhage [Recovered/Resolved]
  - Anaemia [Unknown]
  - Urinary tract infection [Unknown]
